FAERS Safety Report 10057260 (Version 2)
Quarter: 2014Q2

REPORT INFORMATION
  Report Type: Spontaneous
  Country: ES (occurrence: ES)
  Receive Date: 20140403
  Receipt Date: 20140505
  Transmission Date: 20141212
  Serious: Yes (Other)
  Sender: FDA-Public Use
  Company Number: ES-FRI-1000066169

PATIENT
  Age: 78 Year
  Sex: Female
  Weight: 78 kg

DRUGS (2)
  1. ACLIDINIUM [Suspect]
     Indication: BRONCHIECTASIS
     Dosage: 644 MCG
     Route: 055
     Dates: start: 20140205, end: 20140306
  2. ACLIDINIUM [Suspect]
     Indication: DYSPNOEA

REACTIONS (3)
  - Epistaxis [Recovering/Resolving]
  - Dyspnoea [Recovering/Resolving]
  - Off label use [Recovered/Resolved]
